FAERS Safety Report 18371165 (Version 2)
Quarter: 2020Q4

REPORT INFORMATION
  Report Type: Other
  Country: None (occurrence: AU)
  Receive Date: 20201012
  Receipt Date: 20201028
  Transmission Date: 20210114
  Serious: Yes (Other)
  Sender: FDA-Public Use
  Company Number: AU-BAUSCH-BL-2020-028774

PATIENT

DRUGS (3)
  1. PREDNISOLONE. [Suspect]
     Active Substance: PREDNISOLONE
     Indication: IMMUNOSUPPRESSION
     Route: 048
  2. METHYLPREDNISOLONE. [Suspect]
     Active Substance: METHYLPREDNISOLONE
     Indication: IMMUNOSUPPRESSION
     Route: 042
  3. RITUXIMAB. [Suspect]
     Active Substance: RITUXIMAB
     Indication: IMMUNOSUPPRESSION
     Route: 065

REACTIONS (1)
  - Pneumocystis jirovecii pneumonia [Unknown]
